FAERS Safety Report 19768059 (Version 1)
Quarter: 2021Q3

REPORT INFORMATION
  Report Type: Spontaneous
  Country: DE (occurrence: US)
  Receive Date: 20210830
  Receipt Date: 20210830
  Transmission Date: 20211014
  Serious: Yes (Hospitalization)
  Sender: FDA-Public Use
  Company Number: BE-ELI_LILLY_AND_COMPANY-US202108011981

PATIENT
  Age: 68 Year
  Sex: Male
  Weight: 52 kg

DRUGS (4)
  1. AVELUMAB [Suspect]
     Active Substance: AVELUMAB
     Indication: COLORECTAL CANCER METASTATIC
     Dosage: 540 MG, UNKNOWN
     Route: 065
     Dates: start: 20201203
  2. CETUXIMAB. [Suspect]
     Active Substance: CETUXIMAB
     Indication: COLORECTAL CANCER METASTATIC
     Dosage: 650 MG, UNK
     Route: 065
     Dates: start: 20201008
  3. IRINOTECAN [Suspect]
     Active Substance: IRINOTECAN
     Indication: COLORECTAL CANCER METASTATIC
     Dosage: 150 MG/M2, UNK
     Route: 065
     Dates: start: 20201008
  4. IRINOTECAN [Suspect]
     Active Substance: IRINOTECAN
     Dosage: 150 MG/M2, UNK
     Route: 065
     Dates: start: 20201203

REACTIONS (6)
  - Dehydration [Not Recovered/Not Resolved]
  - Nausea [Unknown]
  - General physical health deterioration [Recovered/Resolved]
  - Hypocalcaemia [Unknown]
  - Diarrhoea [Unknown]
  - Hypomagnesaemia [Unknown]

NARRATIVE: CASE EVENT DATE: 20201214
